FAERS Safety Report 25267557 (Version 1)
Quarter: 2025Q2

REPORT INFORMATION
  Report Type: Other
  Country: US (occurrence: US)
  Receive Date: 20250505
  Receipt Date: 20250505
  Transmission Date: 20250716
  Serious: Yes (Other)
  Sender: SPECTRA MEDICAL DEVICES, LLC
  Company Number: US-Spectra Medical Devices, LLC-2176154

PATIENT
  Age: 49 Year
  Sex: Female

DRUGS (10)
  1. LIDOCAINE HYDROCHLORIDE [Suspect]
     Active Substance: LIDOCAINE HYDROCHLORIDE
     Indication: Induction of anaesthesia
  2. PROPOFOL [Suspect]
     Active Substance: PROPOFOL
  3. SUGAMMADEX [Concomitant]
     Active Substance: SUGAMMADEX
  4. ALBUTEROL [Concomitant]
     Active Substance: ALBUTEROL
  5. PHENYLEPHRINE [Concomitant]
     Active Substance: PHENYLEPHRINE
  6. ONDANSETRON [Concomitant]
     Active Substance: ONDANSETRON
  7. ESMOLOL [Concomitant]
     Active Substance: ESMOLOL HYDROCHLORIDE
  8. SEVOFLURANE [Suspect]
     Active Substance: SEVOFLURANE
  9. SUCCINYLCHOLINE CHLORIDE [Suspect]
     Active Substance: SUCCINYLCHOLINE CHLORIDE
  10. ROCURONIUM [Suspect]
     Active Substance: ROCURONIUM BROMIDE

REACTIONS (2)
  - Anaesthetic complication neurological [Unknown]
  - Seizure [Unknown]
